FAERS Safety Report 21785692 (Version 1)
Quarter: 2022Q4

REPORT INFORMATION
  Report Type: Other
  Country: AT (occurrence: None)
  Receive Date: 20221227
  Receipt Date: 20221227
  Transmission Date: 20230113
  Serious: Yes (Hospitalization)
  Sender: FDA-Public Use
  Company Number: AT-ROCHE-3250383

PATIENT
  Age: 65 Year
  Sex: Female

DRUGS (4)
  1. RITUXIMAB [Suspect]
     Active Substance: RITUXIMAB
     Indication: B-cell small lymphocytic lymphoma
     Dosage: 2016 JUNE 6 CYCLES OF RITUXIMAB  2020 MAY 6 CYCLE RITUXIMAB
     Route: 065
     Dates: start: 201606
  2. RITUXIMAB [Suspect]
     Active Substance: RITUXIMAB
     Dosage: 2016 JUNE 6 CYCLES OF RITUXIMAB  2020 MAY 6 CYCLE RITUXIMAB
     Route: 065
     Dates: start: 202005
  3. BENDAMUSTINE [Suspect]
     Active Substance: BENDAMUSTINE
     Indication: B-cell small lymphocytic lymphoma
     Dosage: 2016 JUNE 6 CYCLES OF 2020 MAY 6 CYCLE BENDAMUSTINE?BENDAMUSTINE
     Route: 065
     Dates: start: 201606
  4. BENDAMUSTINE [Suspect]
     Active Substance: BENDAMUSTINE
     Dosage: 2016 JUNE 6 CYCLES OF 2020 MAY 6 CYCLE BENDAMUSTINE?BENDAMUSTINE
     Route: 065
     Dates: start: 202005

REACTIONS (5)
  - COVID-19 [Recovered/Resolved]
  - Epstein-Barr virus infection reactivation [Unknown]
  - COVID-19 [Unknown]
  - Viral mutation identified [Unknown]
  - Humoral immune defect [Unknown]
